FAERS Safety Report 23340554 (Version 2)
Quarter: 2024Q1

REPORT INFORMATION
  Report Type: Spontaneous
  Country: US (occurrence: None)
  Receive Date: 20231227
  Receipt Date: 20240101
  Transmission Date: 20240409
  Serious: Yes (Other)
  Sender: FDA-Public Use
  Company Number: US-ROCHE-3480643

PATIENT
  Sex: Female
  Weight: 98.064 kg

DRUGS (25)
  1. XOLAIR [Suspect]
     Active Substance: OMALIZUMAB
     Indication: Idiopathic urticaria
     Dosage: 150 MG/ML
     Route: 058
     Dates: start: 202311
  2. XOLAIR [Suspect]
     Active Substance: OMALIZUMAB
  3. XOLAIR [Suspect]
     Active Substance: OMALIZUMAB
  4. XOLAIR [Suspect]
     Active Substance: OMALIZUMAB
     Indication: Urticaria
     Route: 058
     Dates: start: 20231025
  5. XOLAIR [Suspect]
     Active Substance: OMALIZUMAB
  6. XOLAIR [Suspect]
     Active Substance: OMALIZUMAB
  7. XOLAIR [Suspect]
     Active Substance: OMALIZUMAB
     Indication: Angioedema
  8. XOLAIR [Suspect]
     Active Substance: OMALIZUMAB
  9. XOLAIR [Suspect]
     Active Substance: OMALIZUMAB
  10. CETIRIZINE [Concomitant]
     Active Substance: CETIRIZINE HYDROCHLORIDE
  11. ALBUTEROL [Concomitant]
     Active Substance: ALBUTEROL
  12. AMITRIPTYLINE [Concomitant]
     Active Substance: AMITRIPTYLINE
  13. ASPIRIN [Concomitant]
     Active Substance: ASPIRIN
  14. CLONAZEPAM [Concomitant]
     Active Substance: CLONAZEPAM
  15. CYCLOBENZAPRINE [Concomitant]
     Active Substance: CYCLOBENZAPRINE
  16. FAMOTIDINE [Concomitant]
     Active Substance: FAMOTIDINE
  17. FIORICET [Concomitant]
     Active Substance: ACETAMINOPHEN\BUTALBITAL\CAFFEINE
  18. FLUDROCORTISONE [Concomitant]
     Active Substance: FLUDROCORTISONE
  19. LINZESS [Concomitant]
     Active Substance: LINACLOTIDE
  20. MS CONTIN [Concomitant]
     Active Substance: MORPHINE SULFATE
  21. NURTEC ODT [Concomitant]
     Active Substance: RIMEGEPANT SULFATE
  22. ZOFRAN [Concomitant]
     Active Substance: ONDANSETRON HYDROCHLORIDE
  23. PROPRANOLOL [Concomitant]
     Active Substance: PROPRANOLOL HYDROCHLORIDE
  24. SINGULAIR [Concomitant]
     Active Substance: MONTELUKAST SODIUM
  25. PREDNISONE [Concomitant]
     Active Substance: PREDNISONE

REACTIONS (1)
  - Anaphylactic reaction [Unknown]
